FAERS Safety Report 22224284 (Version 1)
Quarter: 2023Q2

REPORT INFORMATION
  Report Type: Spontaneous
  Country: US (occurrence: US)
  Receive Date: 20230418
  Receipt Date: 20230418
  Transmission Date: 20230721
  Serious: Yes (Other)
  Sender: FDA-Public Use
  Company Number: US-TAKEDA-2023TUS037540

PATIENT
  Age: 52 Year
  Sex: Male

DRUGS (1)
  1. HUMAN IMMUNOGLOBULIN G [Suspect]
     Active Substance: HUMAN IMMUNOGLOBULIN G
     Indication: Immune-mediated myositis
     Dosage: 50 GRAM, QD
     Route: 042

REACTIONS (3)
  - Retinal vein occlusion [Unknown]
  - Retinal artery occlusion [Unknown]
  - Off label use [Unknown]
